FAERS Safety Report 6637306-1 (Version None)
Quarter: 2010Q1

REPORT INFORMATION
  Report Type: 
  Country: None (occurrence: None)
  Receive Date: 20100316
  Receipt Date: 20100211
  Transmission Date: 20100710
  Serious: No
  Sender: FDA-Public Use
  Company Number: US-ABBOTT-10P-163-0626372-00

PATIENT
  Sex: Male
  Weight: 90.8 kg

DRUGS (3)
  1. TRILIPIX [Suspect]
     Indication: BLOOD CHOLESTEROL INCREASED
     Dates: start: 20090601, end: 20090701
  2. CRESTOR [Concomitant]
     Indication: BLOOD CHOLESTEROL INCREASED
     Dates: start: 20090701
  3. HYZAAR [Concomitant]
     Indication: HYPERTENSION

REACTIONS (2)
  - RASH ERYTHEMATOUS [None]
  - SKIN DISORDER [None]
